FAERS Safety Report 18369784 (Version 5)
Quarter: 2021Q2

REPORT INFORMATION
  Report Type: Report from Study
  Country: JP (occurrence: JP)
  Receive Date: 20201012
  Receipt Date: 20210622
  Transmission Date: 20210717
  Serious: Yes (Life-Threatening, Hospitalization)
  Sender: FDA-Public Use
  Company Number: JP-PFIZER INC-2020354030

PATIENT
  Age: 80 Year
  Sex: Male
  Weight: 46 kg

DRUGS (12)
  1. LANDSEN [Concomitant]
     Active Substance: CLONAZEPAM
     Indication: HYPOAESTHESIA
     Dosage: 0.5 MG, 2X/DAY
     Route: 048
     Dates: end: 20200130
  2. LYRICA [Concomitant]
     Active Substance: PREGABALIN
     Indication: HYPOAESTHESIA
     Dosage: 25 MG, 2X/DAY
     Route: 048
     Dates: start: 20190807
  3. GEBEN [Concomitant]
     Active Substance: SILVER SULFADIAZINE
     Dosage: 50 G
     Route: 061
  4. LASIX [Concomitant]
     Active Substance: FUROSEMIDE
     Dosage: 10 MG, 1X/DAY
     Route: 048
     Dates: start: 20191212, end: 20200130
  5. REBAMIPIDE [Concomitant]
     Active Substance: REBAMIPIDE
     Indication: PROPHYLAXIS AGAINST GASTROINTESTINAL ULCER
     Dosage: 100 MG, 3X/DAY
     Route: 048
     Dates: start: 20180601
  6. EDIROL [Concomitant]
     Active Substance: ELDECALCITOL
     Indication: OSTEOPOROSIS PROPHYLAXIS
     Dosage: 0.75 UG, 1X/DAY
     Route: 048
     Dates: end: 20200206
  7. ENSURE [Concomitant]
     Active Substance: AMINO ACIDS\DEXTROSE\ELECTROLYTES NOS\SOYBEAN OIL\VITAMINS
     Dosage: 250 ML, 1X/DAY
     Route: 048
     Dates: start: 20191129, end: 20200130
  8. VYNDAQEL [Suspect]
     Active Substance: TAFAMIDIS MEGLUMINE
     Indication: HEREDITARY NEUROPATHIC AMYLOIDOSIS
     Dosage: 20 MG, 1X/DAY
     Route: 048
     Dates: start: 20191002, end: 20191227
  9. LOXOPROFEN SODIUM DIHYDRATE [Concomitant]
     Active Substance: LOXOPROFEN SODIUM DIHYDRATE
     Dosage: 60 MG, 3X/DAY
     Route: 048
     Dates: start: 20191129, end: 20191227
  10. ACETAMINOPHEN. [Concomitant]
     Active Substance: ACETAMINOPHEN
     Indication: LARYNGEAL PAIN
     Dosage: 400 MG, 3X/DAY
     Route: 048
     Dates: start: 20191227, end: 20200130
  11. TAKECAB [Concomitant]
     Active Substance: VONOPRAZAN FUMARATE
     Indication: PROPHYLAXIS AGAINST GASTROINTESTINAL ULCER
     Dosage: 10 MG, 1X/DAY
     Route: 048
  12. LOXOPROFEN SODIUM TAPE [Concomitant]
     Indication: BACK PAIN
     Dosage: 100 MG, 1X/DAY
     Route: 062

REACTIONS (2)
  - Hypophagia [Unknown]
  - Renal impairment [Recovering/Resolving]

NARRATIVE: CASE EVENT DATE: 20191129
